FAERS Safety Report 4349213-8 (Version None)
Quarter: 2004Q2

REPORT INFORMATION
  Report Type: 
  Country: None (occurrence: None)
  Receive Date: 20040428
  Receipt Date: 20040420
  Transmission Date: 20050107
  Serious: Yes (Hospitalization)
  Sender: FDA-Public Use
  Company Number: IT-ROCHE-364881

PATIENT
  Age: 82 Year
  Sex: Female

DRUGS (4)
  1. LIXIDOL [Suspect]
     Indication: DRUG USE FOR UNKNOWN INDICATION
     Dosage: FORM: VIAL.
     Route: 030
  2. SELEPARINA [Concomitant]
  3. VECLAM [Concomitant]
  4. LORAZEPAM [Concomitant]

REACTIONS (1)
  - PANCYTOPENIA [None]
